FAERS Safety Report 22088924 (Version 1)
Quarter: 2023Q1

REPORT INFORMATION
  Report Type: Spontaneous
  Country: US (occurrence: US)
  Receive Date: 20230313
  Receipt Date: 20230313
  Transmission Date: 20230417
  Serious: No
  Sender: FDA-Public Use
  Company Number: US-BAYER-2023A028155

PATIENT
  Age: 69 Year
  Sex: Female

DRUGS (1)
  1. MIRALAX [Suspect]
     Active Substance: POLYETHYLENE GLYCOL 3350
     Indication: Gastrointestinal disorder
     Dosage: EVERY NIGHT AT 9 I TAKE 1 SCOOP OF IT AND I PUT IT IN CLEAR WATER AND THEN I DRINK IT
     Route: 048
     Dates: end: 20230302

REACTIONS (1)
  - Product use issue [Unknown]
